FAERS Safety Report 4717184-8 (Version None)
Quarter: 2005Q3

REPORT INFORMATION
  Report Type: 
  Country: None (occurrence: None)
  Receive Date: 20050715
  Receipt Date: 20050704
  Transmission Date: 20060218
  Serious: Yes (Other)
  Sender: FDA-Public Use
  Company Number: 2005-DE-02555GD

PATIENT
  Age: 38 Year
  Sex: Female

DRUGS (1)
  1. DIGOXIN [Suspect]
     Indication: PULMONARY HYPERTENSION

REACTIONS (4)
  - CAESAREAN SECTION [None]
  - DRUG EXPOSURE DURING PREGNANCY [None]
  - HAEMOPTYSIS [None]
  - PREGNANCY [None]
